FAERS Safety Report 7715341-X (Version None)
Quarter: 2011Q3

REPORT INFORMATION
  Report Type: 
  Country: None (occurrence: None)
  Receive Date: 20110829
  Receipt Date: 20110818
  Transmission Date: 20111222
  Serious: Yes (Death, Hospitalization)
  Sender: FDA-Public Use
  Company Number: BR-SANOFI-AVENTIS-2011SA048077

PATIENT
  Age: 72 Year
  Sex: Male
  Weight: 69 kg

DRUGS (5)
  1. SIMAVASTATIN [Concomitant]
  2. DILTIAZEM [Concomitant]
  3. ENALAPRIL MALEATE [Concomitant]
  4. DRONEDARONE HCL [Suspect]
     Indication: ATRIAL FIBRILLATION
     Route: 048
     Dates: start: 20110603
  5. ASPIRIN [Concomitant]

REACTIONS (4)
  - INTESTINAL OBSTRUCTION [None]
  - ACUTE ABDOMEN [None]
  - BLOOD CREATININE INCREASED [None]
  - CARDIAC FAILURE [None]
